FAERS Safety Report 10487707 (Version 2)
Quarter: 2014Q4

REPORT INFORMATION
  Report Type: Spontaneous
  Country: NO (occurrence: NO)
  Receive Date: 20141001
  Receipt Date: 20141001
  Transmission Date: 20150528
  Serious: Yes (Hospitalization)
  Sender: FDA-Public Use
  Company Number: NO-PFIZER INC-2014253255

PATIENT
  Age: 73 Year
  Sex: Female

DRUGS (2)
  1. CALCIGRAN FORTE [Concomitant]
     Indication: BREAST CANCER
     Dosage: 500 MG CALCIUM, 400 IE CHOLECALCIFEROL
     Dates: start: 20140819
  2. AROMASIN [Suspect]
     Active Substance: EXEMESTANE
     Indication: BREAST CANCER RECURRENT
     Dosage: 25 MG, UNK
     Route: 048
     Dates: start: 20140823, end: 20140910

REACTIONS (3)
  - Feeling abnormal [Recovering/Resolving]
  - Nausea [Recovering/Resolving]
  - Pyrexia [Recovered/Resolved]

NARRATIVE: CASE EVENT DATE: 201408
